FAERS Safety Report 8542560-5 (Version None)
Quarter: 2012Q3

REPORT INFORMATION
  Report Type: 
  Country: None (occurrence: None)
  Receive Date: 20120726
  Receipt Date: 20120709
  Transmission Date: 20120928
  Serious: Yes (Other)
  Sender: FDA-Public Use
  Company Number: US-ABBOTT-12P-163-0954576-00

PATIENT
  Sex: Female
  Weight: 59.02 kg

DRUGS (3)
  1. REMICADE [Suspect]
     Indication: CROHN'S DISEASE
     Dosage: TWICE
     Route: 042
     Dates: start: 20120201
  2. REMICADE [Suspect]
     Dosage: TWICE
     Route: 042
  3. HUMIRA [Suspect]
     Indication: PRODUCT USED FOR UNKNOWN INDICATION
     Route: 058
     Dates: start: 20120101, end: 20120101

REACTIONS (8)
  - RASH PRURITIC [None]
  - SKIN BURNING SENSATION [None]
  - DRUG INEFFECTIVE [None]
  - NEURALGIA [None]
  - SWELLING [None]
  - HEADACHE [None]
  - ABDOMINAL PAIN [None]
  - ABDOMINAL DISTENSION [None]
